FAERS Safety Report 4433803-8 (Version None)
Quarter: 2004Q3

REPORT INFORMATION
  Report Type: 
  Country: None (occurrence: None)
  Receive Date: 20040825
  Receipt Date: 20040805
  Transmission Date: 20050211
  Serious: Yes (Hospitalization)
  Sender: FDA-Public Use
  Company Number: A02200402415

PATIENT
  Age: 50 Year
  Sex: Female

DRUGS (9)
  1. ZOLPIDEM TARTRATE [Suspect]
     Indication: SLEEP DISORDER
     Dosage: 200 MG ONCE
     Route: 048
     Dates: start: 20040715, end: 20040715
  2. TERCIAN - (CYAMEMAZINE) - TABLET - 25 MG [Suspect]
     Indication: MENTAL DISORDER
     Dosage: 1000 MG ONCE
     Route: 048
     Dates: start: 20040715, end: 20040715
  3. LYSANXIA - (PRAZEPAM) - TABLET - 40 MG [Suspect]
     Dosage: 10400 MG ONCE
     Route: 048
     Dates: start: 20040715, end: 20040715
  4. PAROXETINE HCL [Suspect]
     Route: 048
     Dates: start: 20040715, end: 20040715
  5. PROPOFAN - (PARACETAMOL/CAFEINE/DEXTROPROPOXYPHENE) - TABLET- 457 MG [Suspect]
     Dosage: 15538 MG
     Route: 048
     Dates: start: 20040715, end: 20040715
  6. STILNOX (ZOLPIDEM) [Concomitant]
  7. PAROXETINE HCL [Concomitant]
  8. LYSANXIA(PRAZEPAM) [Concomitant]
  9. TERECIAN(CYAMEMAZINE) [Concomitant]

REACTIONS (7)
  - AGRANULOCYTOSIS [None]
  - COMA [None]
  - INTENTIONAL OVERDOSE [None]
  - PYREXIA [None]
  - RED BLOOD CELL COUNT DECREASED [None]
  - SUICIDE ATTEMPT [None]
  - WHITE BLOOD CELL COUNT DECREASED [None]
